FAERS Safety Report 18726483 (Version 1)
Quarter: 2021Q1

REPORT INFORMATION
  Report Type: Spontaneous
  Country: IN (occurrence: IN)
  Receive Date: 20210111
  Receipt Date: 20210111
  Transmission Date: 20210419
  Serious: Yes (Other)
  Sender: FDA-Public Use
  Company Number: IN-ALLERGAN-2101149US

PATIENT
  Sex: Male

DRUGS (2)
  1. MESALAZINE UNK [Suspect]
     Active Substance: MESALAMINE
     Indication: COLITIS ULCERATIVE
     Dosage: 2.4 G, QD
  2. MESALAZINE UNK [Suspect]
     Active Substance: MESALAMINE
     Dosage: 800 MG, QD

REACTIONS (3)
  - Alien limb syndrome [Not Recovered/Not Resolved]
  - Toxic leukoencephalopathy [Recovering/Resolving]
  - Generalised tonic-clonic seizure [Unknown]
